FAERS Safety Report 4486897-8 (Version None)
Quarter: 2004Q4

REPORT INFORMATION
  Report Type: 
  Country: None (occurrence: None)
  Receive Date: 20041022
  Receipt Date: 20041007
  Transmission Date: 20050328
  Serious: Yes (Other)
  Sender: FDA-Public Use
  Company Number: 204319

PATIENT
  Age: 36 Year
  Sex: Female
  Weight: 71.2147 kg

DRUGS (2)
  1. AVONEX [Suspect]
     Indication: MULTIPLE SCLEROSIS
     Dosage: 30 MCG QW IM
     Route: 030
     Dates: start: 20040701, end: 20040101
  2. AVONEX [Suspect]
     Indication: MULTIPLE SCLEROSIS
     Dosage: 15 MCG QW IM
     Route: 030
     Dates: start: 20040101

REACTIONS (3)
  - DRUG HYPERSENSITIVITY [None]
  - THROAT TIGHTNESS [None]
  - URTICARIA GENERALISED [None]
